FAERS Safety Report 25356530 (Version 1)
Quarter: 2025Q2

REPORT INFORMATION
  Report Type: Spontaneous
  Country: US (occurrence: US)
  Receive Date: 20250526
  Receipt Date: 20250526
  Transmission Date: 20250717
  Serious: Yes (Hospitalization, Other)
  Sender: Kenvue
  Company Number: US-KENVUE-20250506770

PATIENT

DRUGS (1)
  1. DIPHENHYDRAMINE HYDROCHLORIDE [Suspect]
     Active Substance: DIPHENHYDRAMINE HYDROCHLORIDE
     Indication: Product used for unknown indication
     Route: 048

REACTIONS (7)
  - Delirium [Unknown]
  - Hyperhidrosis [Unknown]
  - Intentional product use issue [Unknown]
  - Hallucination [Unknown]
  - Urinary retention [Unknown]
  - Tachycardia [Unknown]
  - Toxicity to various agents [Unknown]
